FAERS Safety Report 16368436 (Version 2)
Quarter: 2019Q2

REPORT INFORMATION
  Report Type: Spontaneous
  Country: JP (occurrence: JP)
  Receive Date: 20190529
  Receipt Date: 20190619
  Transmission Date: 20190711
  Serious: Yes (Death)
  Sender: FDA-Public Use
  Company Number: JP-ELI_LILLY_AND_COMPANY-JP201905013478

PATIENT
  Age: 69 Year
  Sex: Female

DRUGS (3)
  1. ERBITUX [Suspect]
     Active Substance: CETUXIMAB
     Indication: TONGUE NEOPLASM MALIGNANT STAGE UNSPECIFIED
     Dosage: 400 MG, UNK
     Route: 041
     Dates: start: 20190206, end: 20190206
  2. ERBITUX [Suspect]
     Active Substance: CETUXIMAB
     Dosage: 250 MG, WEEKLY (1/W)
     Route: 041
     Dates: start: 201902, end: 20190412
  3. PACLITAXEL. [Concomitant]
     Active Substance: PACLITAXEL
     Indication: TONGUE NEOPLASM MALIGNANT STAGE UNSPECIFIED
     Dosage: 80 MG, WEEKLY (1/W)
     Route: 042
     Dates: start: 20190206, end: 20190412

REACTIONS (2)
  - Death [Fatal]
  - Off label use [Unknown]

NARRATIVE: CASE EVENT DATE: 20190519
